FAERS Safety Report 17599034 (Version 2)
Quarter: 2020Q1

REPORT INFORMATION
  Report Type: Spontaneous
  Country: US (occurrence: US)
  Receive Date: 20200330
  Receipt Date: 20200330
  Transmission Date: 20200409
  Serious: Yes (Other)
  Sender: FDA-Public Use
  Company Number: US-PFIZER INC-2020126449

PATIENT
  Sex: Male

DRUGS (3)
  1. LYRICA [Suspect]
     Active Substance: PREGABALIN
     Dosage: 150 MG, 2X/DAY (150MG IN AM AND 150MG IN PM)
  2. TOVIAZ [Suspect]
     Active Substance: FESOTERODINE FUMARATE
     Dosage: UNK
  3. LYRICA [Suspect]
     Active Substance: PREGABALIN
     Dosage: UNK, 1X/DAY (CUT DOSE IN HALF AND TO ONLY TAKE IT ONCE A DAY)

REACTIONS (4)
  - Dementia [Unknown]
  - Speech disorder [Unknown]
  - Tremor [Unknown]
  - Feeling abnormal [Recovering/Resolving]
